FAERS Safety Report 9164457 (Version 1)
Quarter: 2013Q1

REPORT INFORMATION
  Report Type: Spontaneous
  Country: IE (occurrence: IE)
  Receive Date: 20130315
  Receipt Date: 20130315
  Transmission Date: 20140127
  Serious: Yes (Death)
  Sender: FDA-Public Use
  Company Number: IE-AMGEN-IRLSP2012073354

PATIENT
  Age: 70 Year
  Sex: Female

DRUGS (1)
  1. NEULASTA [Suspect]
     Indication: BREAST CANCER
     Dosage: 6 MG/0.6ML, Q3WK
     Route: 058
     Dates: start: 20121023

REACTIONS (3)
  - Death [Fatal]
  - Nausea [Recovered/Resolved]
  - Bone pain [Recovered/Resolved]
